FAERS Safety Report 23151420 (Version 2)
Quarter: 2023Q4

REPORT INFORMATION
  Report Type: Spontaneous
  Country: US (occurrence: US)
  Receive Date: 20231107
  Receipt Date: 20231226
  Transmission Date: 20240109
  Serious: Yes (Other)
  Sender: FDA-Public Use
  Company Number: US-ABBVIE-5479872

PATIENT
  Age: 72 Year
  Sex: Male
  Weight: 74.842 kg

DRUGS (10)
  1. CREON [Suspect]
     Active Substance: PANCRELIPASE AMYLASE\PANCRELIPASE LIPASE\PANCRELIPASE PROTEASE
     Indication: Product used for unknown indication
     Route: 048
  2. CREON [Suspect]
     Active Substance: PANCRELIPASE AMYLASE\PANCRELIPASE LIPASE\PANCRELIPASE PROTEASE
     Indication: Product used for unknown indication
     Dosage: STRENGTH: 24,000 LU
     Route: 048
     Dates: start: 20230621
  3. LISINOPRIL [Concomitant]
     Active Substance: LISINOPRIL
     Indication: Diabetes mellitus
     Dosage: FREQUENCY TEXT: 1
     Dates: start: 2004
  4. ATORVASTATIN [Concomitant]
     Active Substance: ATORVASTATIN
     Indication: Diabetes mellitus
     Dosage: FREQUENCY TEXT: 1
     Dates: start: 2005
  5. ESCITALOPRAM [Concomitant]
     Active Substance: ESCITALOPRAM OXALATE
     Indication: Depression
     Dosage: FREQUENCY TEXT: 1
     Dates: start: 2004
  6. digestive advantage [Concomitant]
     Indication: Pancreatic failure
     Dosage: FREQUENCY TEXT: 1
     Dates: start: 20230604
  7. PANTOPRAZOLE [Concomitant]
     Active Substance: PANTOPRAZOLE
     Indication: Gastrooesophageal reflux disease
     Dosage: FREQUENCY TEXT: 1
     Dates: start: 2019
  8. METFORMIN [Concomitant]
     Active Substance: METFORMIN HYDROCHLORIDE
     Indication: Diabetes mellitus
     Dosage: FREQUENCY TEXT: 2?ROUTE OF ADMINISTRATION: INJECTION
     Dates: start: 2001
  9. HUMULIN N [Concomitant]
     Active Substance: INSULIN HUMAN
     Indication: Diabetes mellitus
     Dates: start: 2005
  10. GLIMEPIRIDE [Concomitant]
     Active Substance: GLIMEPIRIDE
     Indication: Diabetes mellitus
     Dosage: FREQUENCY TEXT: 2
     Dates: start: 2005

REACTIONS (7)
  - Pancreatic failure [Recovered/Resolved]
  - Gastrointestinal infection [Recovering/Resolving]
  - Abdominal discomfort [Recovered/Resolved]
  - Muscle spasms [Recovering/Resolving]
  - Diverticulum [Unknown]
  - Diarrhoea [Recovering/Resolving]
  - Irritable bowel syndrome [Unknown]

NARRATIVE: CASE EVENT DATE: 20231101
